FAERS Safety Report 6551329-2 (Version None)
Quarter: 2010Q1

REPORT INFORMATION
  Report Type: 
  Country: None (occurrence: None)
  Receive Date: 20100120
  Receipt Date: 20100114
  Transmission Date: 20100710
  Serious: Yes (Hospitalization, Other)
  Sender: FDA-Public Use
  Company Number: 2009SP042100

PATIENT
  Age: 23 Year
  Sex: Female

DRUGS (2)
  1. NUVARING [Suspect]
     Indication: DRUG USE FOR UNKNOWN INDICATION
     Dosage: ;VAG
     Route: 067
  2. PALAFER [Concomitant]

REACTIONS (11)
  - ABDOMINAL PAIN [None]
  - ANAL ABSCESS [None]
  - CONSTIPATION [None]
  - DIARRHOEA [None]
  - DYSMENORRHOEA [None]
  - FOREIGN TRAVEL [None]
  - GALLBLADDER DISORDER [None]
  - MENORRHAGIA [None]
  - PELVIC FLUID COLLECTION [None]
  - RECTAL FISSURE [None]
  - STREPTOCOCCAL SEPSIS [None]
